FAERS Safety Report 4319370-8 (Version None)
Quarter: 2004Q1

REPORT INFORMATION
  Report Type: 
  Country: None (occurrence: None)
  Receive Date: 20040316
  Receipt Date: 20040303
  Transmission Date: 20041129
  Serious: No
  Sender: FDA-Public Use
  Company Number: 04P-008-0252123-00

PATIENT
  Age: 11 Year
  Sex: Male

DRUGS (1)
  1. VALPROATE SODIUM [Suspect]
     Indication: EPILEPSY
     Dosage: ORAL
     Route: 048
     Dates: end: 20020101

REACTIONS (3)
  - LUMBAR VERTEBRAL FRACTURE [None]
  - OSTEOPENIA [None]
  - OSTEOPOROSIS [None]
